FAERS Safety Report 6111138-5 (Version None)
Quarter: 2009Q1

REPORT INFORMATION
  Report Type: 
  Country: None (occurrence: None)
  Receive Date: 20090309
  Receipt Date: 20090224
  Transmission Date: 20090719
  Serious: Yes (Hospitalization, Other)
  Sender: FDA-Public Use
  Company Number: GXKR2009GB02364

PATIENT
  Age: 56 Year
  Sex: Male

DRUGS (12)
  1. FUROSEMIDE [Suspect]
     Dosage: 40 MG, ORAL
     Route: 048
     Dates: start: 20090113, end: 20090122
  2. RAMIPRIL [Suspect]
     Dosage: 1.25 MG, ORAL
     Route: 048
     Dates: start: 20090113, end: 20090122
  3. AMINOPHYLLIN [Concomitant]
  4. ACETYLSALICYLIC ACID (ACETYLSALICYCLIC ACID) [Concomitant]
  5. VALPROATE SODIUM [Concomitant]
  6. IPRATROPIUM BROMIDE [Concomitant]
  7. ISOSORBIDE MONONITRATE [Concomitant]
  8. MONTELUKAST SODIUM [Concomitant]
  9. QUETIAPINE (QUETIAPINE) [Concomitant]
  10. SALBUTAMOL (SALBUTAMOL) [Concomitant]
  11. FLUTICASONE PROPIONATE W/SALMETEROL XINAFOATE (FLUTICASONE PROPIONATE, [Concomitant]
  12. SULPIRIDE (SULPIRIDE) [Concomitant]

REACTIONS (1)
  - RENAL FAILURE ACUTE [None]
